FAERS Safety Report 6955401-4 (Version None)
Quarter: 2010Q3

REPORT INFORMATION
  Report Type: 
  Country: None (occurrence: None)
  Receive Date: 20100830
  Receipt Date: 20100614
  Transmission Date: 20110219
  Serious: No
  Sender: FDA-Public Use
  Company Number: US-BRISTOL-MYERS SQUIBB COMPANY-15155666

PATIENT
  Sex: Female

DRUGS (1)
  1. SINEMET [Suspect]
     Dosage: 1DF=A FOURTH OR A HALF OF A PILL

REACTIONS (1)
  - ADVERSE EVENT [None]
